FAERS Safety Report 5164412-3 (Version None)
Quarter: 2006Q4

REPORT INFORMATION
  Report Type: 
  Country: None (occurrence: None)
  Receive Date: 20061127
  Receipt Date: 20061127
  Transmission Date: 20070319
  Serious: Yes (Disabling, Other)
  Sender: FDA-Public Use
  Company Number: None

PATIENT
  Age: 55 Year
  Sex: Female
  Weight: 72.5755 kg

DRUGS (5)
  1. BONIVA [Suspect]
     Indication: OSTEOPOROSIS
     Dosage: 1 TABLET PER MONTH ORALLY
     Route: 048
     Dates: start: 20060327, end: 20061027
  2. WELLBUTRIN [Concomitant]
  3. ADVIL [Concomitant]
  4. SINGULAIR [Concomitant]
  5. NASAREL [Concomitant]

REACTIONS (6)
  - BLISTER [None]
  - BURNING SENSATION [None]
  - PRURITUS [None]
  - RASH GENERALISED [None]
  - SCAR [None]
  - SKIN EXFOLIATION [None]
